FAERS Safety Report 17036922 (Version 2)
Quarter: 2019Q4

REPORT INFORMATION
  Report Type: Report from Study
  Country: CO (occurrence: CO)
  Receive Date: 20191115
  Receipt Date: 20191202
  Transmission Date: 20200122
  Serious: Yes (Hospitalization, Other)
  Sender: FDA-Public Use
  Company Number: CO-009507513-1810COL000504

PATIENT
  Age: 64 Year
  Sex: Female
  Weight: 50 kg

DRUGS (2)
  1. MORPHINE [Concomitant]
     Active Substance: MORPHINE
     Indication: PULMONARY PAIN
     Dosage: 4 DROPS EVERY 8 HOURS, Q8H
     Route: 048
     Dates: start: 20100420
  2. PEMBROLIZUMAB. [Suspect]
     Active Substance: PEMBROLIZUMAB
     Indication: LUNG CANCER METASTATIC
     Dosage: 200 MILLIGRAM, EVERY 3 WEEKS
     Route: 042
     Dates: start: 20180905, end: 20191115

REACTIONS (26)
  - Asphyxia [Recovered/Resolved]
  - Asphyxia [Not Recovered/Not Resolved]
  - Pyrexia [Recovered/Resolved]
  - Product dose omission [Unknown]
  - Pain in extremity [Not Recovered/Not Resolved]
  - Acute respiratory distress syndrome [Recovering/Resolving]
  - Weight decreased [Recovered/Resolved]
  - Pyrexia [Not Recovered/Not Resolved]
  - Pyrexia [Not Recovered/Not Resolved]
  - Pneumonia [Recovered/Resolved]
  - Incoherent [Not Recovered/Not Resolved]
  - Temperature regulation disorder [Not Recovered/Not Resolved]
  - Lung disorder [Not Recovered/Not Resolved]
  - Seizure [Recovering/Resolving]
  - Respiratory distress [Not Recovered/Not Resolved]
  - Drug ineffective [Recovering/Resolving]
  - Malaise [Recovering/Resolving]
  - Tachypnoea [Not Recovered/Not Resolved]
  - Pulmonary pain [Not Recovered/Not Resolved]
  - Hyperhidrosis [Not Recovered/Not Resolved]
  - Inappropriate schedule of product administration [Unknown]
  - Malignant neoplasm progression [Not Recovered/Not Resolved]
  - Pulmonary pain [Recovering/Resolving]
  - Chills [Not Recovered/Not Resolved]
  - Intracranial mass [Not Recovered/Not Resolved]
  - Weight decreased [Unknown]

NARRATIVE: CASE EVENT DATE: 2018
